FAERS Safety Report 21354674 (Version 1)
Quarter: 2022Q3

REPORT INFORMATION
  Report Type: Spontaneous
  Country: US (occurrence: None)
  Receive Date: 20220919
  Receipt Date: 20220919
  Transmission Date: 20221027
  Serious: Yes (Hospitalization, Disabling, Congenital Anomaly)
  Sender: FDA-Public Use
  Company Number: None

PATIENT
  Age: 56 Year
  Sex: Female
  Weight: 85.5 kg

DRUGS (14)
  1. LAMOTRIGINE [Suspect]
     Active Substance: LAMOTRIGINE
     Indication: Bipolar disorder
     Dosage: OTHER QUANTITY : 1 CAPSULE(S);?FREQUENCY : AT BEDTIME;?
     Route: 048
     Dates: start: 20220609, end: 20220610
  2. Cozaar/losartan [Concomitant]
  3. Depakote ER/divalproex ER [Concomitant]
  4. LEXAPRO [Concomitant]
     Active Substance: ESCITALOPRAM OXALATE
  5. Atarax/hydroxizine HCL [Concomitant]
  6. Novitium/prazosine [Concomitant]
  7. ATORVASTATIN [Concomitant]
     Active Substance: ATORVASTATIN
  8. TYLENOL [Concomitant]
     Active Substance: ACETAMINOPHEN
  9. IBUPROFEN [Concomitant]
     Active Substance: IBUPROFEN
  10. CALCIUM\VITAMIN D [Concomitant]
     Active Substance: CALCIUM\VITAMIN D
  11. COLACE [Concomitant]
     Active Substance: DOCUSATE SODIUM
  12. SEROQUEL XR [Suspect]
     Active Substance: QUETIAPINE FUMARATE
  13. TOPAMAX [Suspect]
     Active Substance: TOPIRAMATE
  14. DIVALPROEX SODIUM [Suspect]
     Active Substance: DIVALPROEX SODIUM

REACTIONS (6)
  - Logorrhoea [None]
  - Screaming [None]
  - Anger [None]
  - Impulse-control disorder [None]
  - Adverse drug reaction [None]
  - Treatment noncompliance [None]

NARRATIVE: CASE EVENT DATE: 20220610
